FAERS Safety Report 26006594 (Version 1)
Quarter: 2025Q4

REPORT INFORMATION
  Report Type: Spontaneous
  Country: EU (occurrence: EU)
  Receive Date: 20251106
  Receipt Date: 20251106
  Transmission Date: 20260118
  Serious: Yes (Hospitalization, Other)
  Sender: MYLAN
  Company Number: None

PATIENT
  Age: 31 Year
  Sex: Female

DRUGS (8)
  1. PAROXETINE [Suspect]
     Active Substance: PAROXETINE
     Indication: Depression
     Dosage: 20 DOSAGE FORM
     Dates: start: 20220818, end: 20220818
  2. PAROXETINE [Suspect]
     Active Substance: PAROXETINE
     Dosage: 20 DOSAGE FORM
     Route: 048
     Dates: start: 20220818, end: 20220818
  3. PAROXETINE [Suspect]
     Active Substance: PAROXETINE
     Dosage: 20 DOSAGE FORM
     Route: 048
     Dates: start: 20220818, end: 20220818
  4. PAROXETINE [Suspect]
     Active Substance: PAROXETINE
     Dosage: 20 DOSAGE FORM
     Dates: start: 20220818, end: 20220818
  5. ALCOHOL [Concomitant]
     Active Substance: ALCOHOL
     Dosage: 400 MILLILITER
  6. ALCOHOL [Concomitant]
     Active Substance: ALCOHOL
     Dosage: 400 MILLILITER
     Route: 065
  7. ALCOHOL [Concomitant]
     Active Substance: ALCOHOL
     Dosage: 400 MILLILITER
     Route: 065
  8. ALCOHOL [Concomitant]
     Active Substance: ALCOHOL
     Dosage: 400 MILLILITER

REACTIONS (3)
  - Tremor [Unknown]
  - Suicide attempt [Unknown]
  - Drug abuse [Unknown]
